FAERS Safety Report 4937397-X (Version None)
Quarter: 2006Q1

REPORT INFORMATION
  Report Type: 
  Country: None (occurrence: None)
  Receive Date: 20060306
  Receipt Date: 20060220
  Transmission Date: 20060701
  Serious: Yes (Hospitalization, Other)
  Sender: FDA-Public Use
  Company Number: 2005173520

PATIENT
  Age: 76 Year
  Sex: Female
  Weight: 56.246 kg

DRUGS (9)
  1. LIPITOR [Suspect]
     Indication: BLOOD CHOLESTEROL INCREASED
  2. CORTICOSTEROIDS (CORTICOSTEROIDS) [Suspect]
     Indication: POLYMYALGIA RHEUMATICA
  3. PLAVIX [Concomitant]
  4. OXYBUTYNIN CHLORIDE [Concomitant]
  5. SYTNRHOID (LEVOTHYROXINE SODIUM) [Concomitant]
  6. ANALGESICS(ANALGESICS) [Concomitant]
  7. VITAMINS (VITAMINS) [Concomitant]
  8. ALL OTHER THERAPEUTICPRODUCTS [Concomitant]
  9. LOVASTATIN [Suspect]
     Indication: BLOOD CHOLESTEROL INCREASED
     Dates: start: 20050101

REACTIONS (5)
  - ARTERIAL OCCLUSIVE DISEASE [None]
  - BLOOD CHOLESTEROL INCREASED [None]
  - BLOOD TRIGLYCERIDES INCREASED [None]
  - CEREBROVASCULAR ACCIDENT [None]
  - WEIGHT DECREASED [None]
